FAERS Safety Report 22991652 (Version 2)
Quarter: 2023Q4

REPORT INFORMATION
  Report Type: Report from Study
  Country: US (occurrence: US)
  Receive Date: 20230927
  Receipt Date: 20231222
  Transmission Date: 20240110
  Serious: Yes (Other)
  Sender: FDA-Public Use
  Company Number: US-ABBVIE-5420189

PATIENT
  Sex: Male

DRUGS (1)
  1. SKYRIZI [Suspect]
     Active Substance: RISANKIZUMAB-RZAA
     Indication: Psoriasis
     Route: 058
     Dates: start: 20221019

REACTIONS (3)
  - Cataract [Not Recovered/Not Resolved]
  - Scab [Unknown]
  - Erythema [Unknown]

NARRATIVE: CASE EVENT DATE: 20230101
